FAERS Safety Report 4582974-1 (Version None)
Quarter: 2005Q1

REPORT INFORMATION
  Report Type: 
  Country: None (occurrence: None)
  Receive Date: 20050215
  Receipt Date: 20050126
  Transmission Date: 20050727
  Serious: Yes (Death, Other)
  Sender: FDA-Public Use
  Company Number: JP-BRISTOL-MYERS SQUIBB COMPANY-12860714

PATIENT
  Age: 14 Year
  Sex: Male

DRUGS (2)
  1. IFOMIDE [Suspect]
     Indication: SYNOVIAL SARCOMA
     Route: 041
     Dates: start: 19980608, end: 19980612
  2. VEPESID [Suspect]
     Indication: SYNOVIAL SARCOMA
     Route: 041
     Dates: start: 19980608, end: 19980612

REACTIONS (3)
  - DEATH [None]
  - ENCEPHALOPATHY [None]
  - FAECAL INCONTINENCE [None]
